FAERS Safety Report 7754073-9 (Version None)
Quarter: 2011Q3

REPORT INFORMATION
  Report Type: 
  Country: None (occurrence: None)
  Receive Date: 20110915
  Receipt Date: 20110908
  Transmission Date: 20111222
  Serious: Yes (Hospitalization, Other)
  Sender: FDA-Public Use
  Company Number: US-PFIZER INC-2011212441

PATIENT
  Age: 78 Year
  Sex: Female

DRUGS (3)
  1. GABAPENTIN [Suspect]
     Indication: PAIN
  2. ESCITALOPRAM [Concomitant]
     Indication: DEPRESSION
     Dosage: 20 MG, DAILY
  3. GABAPENTIN [Suspect]
     Indication: NEUROPATHY PERIPHERAL
     Dosage: 600 MG, 2X/DAY

REACTIONS (6)
  - MENTAL STATUS CHANGES [None]
  - APHASIA [None]
  - AFFECT LABILITY [None]
  - CONVULSION [None]
  - ELECTROENCEPHALOGRAM ABNORMAL [None]
  - SYMPTOM MASKED [None]
